FAERS Safety Report 16226705 (Version 1)
Quarter: 2019Q2

REPORT INFORMATION
  Report Type: Spontaneous
  Country: US (occurrence: US)
  Receive Date: 20190423
  Receipt Date: 20190423
  Transmission Date: 20190711
  Serious: No
  Sender: FDA-Public Use
  Company Number: US-BIOCON-BCN-2018-000340

PATIENT
  Age: 68 Year
  Sex: Female
  Weight: 75.75 kg

DRUGS (2)
  1. SIMVASTATIN. [Suspect]
     Active Substance: SIMVASTATIN
     Dosage: RESTARTED AGAIN
  2. SIMVASTATIN. [Suspect]
     Active Substance: SIMVASTATIN
     Indication: BLOOD CHOLESTEROL INCREASED
     Dosage: ONE TABLET PER DAY.
     Route: 048
     Dates: start: 20181027, end: 20181126

REACTIONS (4)
  - Balance disorder [Unknown]
  - Treatment noncompliance [Unknown]
  - Product taste abnormal [Not Recovered/Not Resolved]
  - Headache [Recovered/Resolved]

NARRATIVE: CASE EVENT DATE: 201810
